FAERS Safety Report 10645955 (Version 1)
Quarter: 2014Q4

REPORT INFORMATION
  Report Type: Spontaneous
  Country: FR (occurrence: FR)
  Receive Date: 20141211
  Receipt Date: 20141211
  Transmission Date: 20150529
  Serious: Yes (Hospitalization)
  Sender: FDA-Public Use
  Company Number: PHHY2014FR156394

PATIENT
  Age: 8 Year
  Sex: Male
  Weight: 29 kg

DRUGS (2)
  1. MALACEF [Suspect]
     Active Substance: ARTESUNATE
     Indication: MALARIA
     Dosage: 2.4 MG/KG, EVERY 12 HRS (I.E. ON H0, H+12 AND H+24)
     Route: 042
     Dates: start: 20140910, end: 20140911
  2. RIAMET [Suspect]
     Active Substance: ARTEMETHER\LUMEFANTRINE
     Indication: MALARIA
     Dosage: 3 DF (BY INTAKE ON H0, H+24, H+36, H+48 AND H+60)
     Route: 048
     Dates: start: 20140910, end: 20140913

REACTIONS (2)
  - Reticulocytopenia [Unknown]
  - Haemolytic anaemia [Unknown]

NARRATIVE: CASE EVENT DATE: 20140913
